FAERS Safety Report 21358516 (Version 4)
Quarter: 2024Q1

REPORT INFORMATION
  Report Type: Report from Study
  Country: CA (occurrence: CA)
  Receive Date: 20220921
  Receipt Date: 20240216
  Transmission Date: 20240410
  Serious: Yes (Other)
  Sender: FDA-Public Use
  Company Number: CA-TAKEDA-2022TUS066270

PATIENT
  Age: 56 Year
  Sex: Female

DRUGS (9)
  1. VEDOLIZUMAB [Suspect]
     Active Substance: VEDOLIZUMAB
     Indication: Colitis ulcerative
     Dosage: 300 MILLIGRAM
     Route: 042
     Dates: start: 20220608
  2. VEDOLIZUMAB [Suspect]
     Active Substance: VEDOLIZUMAB
     Dosage: 300 MILLIGRAM
     Route: 042
  3. VEDOLIZUMAB [Suspect]
     Active Substance: VEDOLIZUMAB
     Dosage: 300 MILLIGRAM, Q4WEEKS
     Route: 042
     Dates: start: 20231011
  4. Cortiment [Concomitant]
     Dosage: UNK
     Dates: start: 20220527
  5. Salofalk [Concomitant]
     Dosage: 1 MILLIGRAM
     Route: 054
     Dates: start: 201005, end: 20220828
  6. MESALAMINE [Concomitant]
     Active Substance: MESALAMINE
     Dosage: 4.8 GRAM, QD
     Dates: start: 201005
  7. CIPRALEX [Concomitant]
     Active Substance: ESCITALOPRAM OXALATE
     Dosage: 15 MILLIGRAM, QD
  8. QUETIAPINE [Concomitant]
     Active Substance: QUETIAPINE
     Dosage: 25 MILLIGRAM, QD
  9. PREDNISONE [Concomitant]
     Active Substance: PREDNISONE
     Dosage: 9 MILLIGRAM, QD

REACTIONS (4)
  - Colitis ulcerative [Unknown]
  - Drug ineffective [Not Recovered/Not Resolved]
  - Off label use [Unknown]
  - Blood pressure increased [Not Recovered/Not Resolved]

NARRATIVE: CASE EVENT DATE: 20231011
